FAERS Safety Report 7924502-6 (Version None)
Quarter: 2011Q4

REPORT INFORMATION
  Report Type: 
  Country: None (occurrence: None)
  Receive Date: 20111117
  Receipt Date: 20110323
  Transmission Date: 20120403
  Serious: Yes (Other)
  Sender: FDA-Public Use
  Company Number: US-AMGEN-USASP2011015733

PATIENT
  Age: 47 Year
  Sex: Male

DRUGS (2)
  1. ENBREL [Suspect]
     Indication: PSORIATIC ARTHROPATHY
     Dosage: UNK
     Dates: start: 20100405
  2. ENBREL [Suspect]
     Indication: PSORIASIS

REACTIONS (7)
  - SUDDEN ONSET OF SLEEP [None]
  - INFLUENZA [None]
  - POOR QUALITY SLEEP [None]
  - PURULENCE [None]
  - CONVULSION [None]
  - PSORIATIC ARTHROPATHY [None]
  - DRUG EFFECT DECREASED [None]
